FAERS Safety Report 6554384-9 (Version None)
Quarter: 2010Q1

REPORT INFORMATION
  Report Type: 
  Country: None (occurrence: None)
  Receive Date: 20100127
  Receipt Date: 20100121
  Transmission Date: 20100710
  Serious: Yes (Other)
  Sender: FDA-Public Use
  Company Number: Z0001135A

PATIENT
  Age: 71 Year
  Sex: Male
  Weight: 92 kg

DRUGS (7)
  1. PAZOPANIB [Suspect]
     Indication: RENAL CELL CARCINOMA
     Dosage: 800MG PER DAY
     Route: 048
     Dates: start: 20090519
  2. ZOCOR [Concomitant]
     Dosage: 10MG PER DAY
     Route: 048
     Dates: end: 20090701
  3. TOPROL-XL [Concomitant]
     Indication: HYPERTENSION
     Dosage: 10MG PER DAY
     Route: 048
     Dates: end: 20091103
  4. ALTACE [Concomitant]
     Indication: HYPERTENSION
     Dosage: 10MG PER DAY
     Route: 048
     Dates: end: 20091103
  5. TYLENOL [Concomitant]
     Indication: HEADACHE
     Dosage: 650MG AS REQUIRED
     Route: 048
     Dates: start: 20090616, end: 20090701
  6. IMODIUM [Concomitant]
     Dosage: 1TAB AS REQUIRED
     Route: 048
     Dates: end: 20090616
  7. VITAMIN D [Concomitant]
     Indication: SUPPLEMENTATION THERAPY
     Dosage: 1TAB AS REQUIRED
     Route: 048
     Dates: start: 20090616, end: 20090701

REACTIONS (2)
  - ALANINE AMINOTRANSFERASE INCREASED [None]
  - ASPARTATE AMINOTRANSFERASE INCREASED [None]
